FAERS Safety Report 22181164 (Version 1)
Quarter: 2023Q2

REPORT INFORMATION
  Report Type: Spontaneous
  Country: US (occurrence: None)
  Receive Date: 20230405
  Receipt Date: 20230405
  Transmission Date: 20230722
  Serious: Yes (Other)
  Sender: FDA-Public Use
  Company Number: None

PATIENT
  Age: 53 Year
  Sex: Male

DRUGS (1)
  1. TESTOSTERONE PROPIONATE [Suspect]
     Active Substance: TESTOSTERONE PROPIONATE
     Indication: Hypogonadism
     Dosage: FREQUENCY : DAILY;?
     Route: 030

REACTIONS (2)
  - Injection site pain [None]
  - Injection site swelling [None]

NARRATIVE: CASE EVENT DATE: 20230210
